FAERS Safety Report 6209498-X (Version None)
Quarter: 2009Q2

REPORT INFORMATION
  Report Type: 
  Country: None (occurrence: None)
  Receive Date: 20090601
  Receipt Date: 20090522
  Transmission Date: 20091009
  Serious: Yes (Hospitalization, Other)
  Sender: FDA-Public Use
  Company Number: PHHY2008JP29890

PATIENT
  Age: 68 Year
  Sex: Female

DRUGS (2)
  1. GLEEVEC [Suspect]
     Indication: GASTROINTESTINAL STROMAL TUMOUR
     Dosage: 400 MG/DAY
     Route: 048
  2. GLEEVEC [Suspect]
     Dosage: 200 MG/DAY
     Route: 048

REACTIONS (4)
  - ANAEMIA [None]
  - ANOREXIA [None]
  - GASTRECTOMY [None]
  - GENERALISED OEDEMA [None]
